FAERS Safety Report 18507200 (Version 2)
Quarter: 2022Q4

REPORT INFORMATION
  Report Type: Spontaneous
  Country: DE (occurrence: DE)
  Receive Date: 20201116
  Receipt Date: 20221031
  Transmission Date: 20230112
  Serious: Yes (Hospitalization, Other)
  Sender: FDA-Public Use
  Company Number: DE-ADRED-06021-01

PATIENT
  Age: 59 Year
  Sex: Male

DRUGS (16)
  1. IBUPROFEN [Suspect]
     Active Substance: IBUPROFEN
     Dosage: UNK UNK, PRN,IF NECESSARY, TABLETS
     Route: 048
  2. CLOPIDOGREL BISULFATE [Suspect]
     Active Substance: CLOPIDOGREL BISULFATE
     Dosage: 75 MG, 1-0-0-0, TABLETS
     Route: 048
  3. SPIRONOLACTONE [Suspect]
     Active Substance: SPIRONOLACTONE
     Dosage: 50MG, 1-0-0-0, TABLETS
     Route: 048
  4. RIVAROXABAN [Suspect]
     Active Substance: RIVAROXABAN
     Dosage: 20 MG, QD,1-0-0-0, TABLETS
     Route: 048
  5. EPLERENONE [Suspect]
     Active Substance: EPLERENONE
     Dosage: 25 MG, 1-0-0-0, TABLETS
     Route: 048
  6. FUROSEMIDE [Concomitant]
     Active Substance: FUROSEMIDE
     Dosage: 40 MG  1-0.5-0-0
     Route: 048
  7. MAGNESIUM DIASPORAL [MAGNESIUM CITRATE] [Concomitant]
     Dosage: 150MG, 1-0-1-0, TABLETS
     Route: 048
  8. PANTOPRAZOLE [Concomitant]
     Active Substance: PANTOPRAZOLE
     Dosage: 40 MG, 0-0-1-0, TABLETS
     Route: 048
  9. IVABRADINE [Concomitant]
     Active Substance: IVABRADINE
     Dosage: 5 MG, 1-0-0-1, TABLETS
     Route: 048
  10. ALBUTEROL [Concomitant]
     Active Substance: ALBUTEROL
     Dosage: 0.1 MG, IF REQUIRED, METERED DOSE INHALER
     Route: 055
  11. SACUBITRIL\VALSARTAN [Concomitant]
     Active Substance: SACUBITRIL\VALSARTAN
     Dosage: 49|51 MG, 1-0-1-0, TABLET
     Route: 048
  12. ALLOPURINOL [Concomitant]
     Active Substance: ALLOPURINOL
     Dosage: 300 MG, 0-0-1-0, TABLETS
     Route: 048
  13. EZETIMIBE [Concomitant]
     Active Substance: EZETIMIBE
     Dosage: 10 MG, 0-0-1-0, TABLETS
     Route: 048
  14. TIOTROPIUM BROMIDE [Concomitant]
     Active Substance: TIOTROPIUM BROMIDE
     Dosage: 18 UG, QD,1-0-0-0, METERED DOSE INHALER
     Route: 055
  15. ASPIRIN [Concomitant]
     Active Substance: ASPIRIN
     Dosage: 100MG, 1-0-0-0, TABLETS
     Route: 048
  16. METFORMIN [Concomitant]
     Active Substance: METFORMIN HYDROCHLORIDE
     Dosage: 1000MG,BID 1-0-1-0, TABLETS
     Route: 048

REACTIONS (10)
  - Haematemesis [Unknown]
  - Nausea [Unknown]
  - General physical health deterioration [Unknown]
  - Electrolyte imbalance [Unknown]
  - Vomiting [Unknown]
  - Melaena [Unknown]
  - Haematemesis [Unknown]
  - Gastritis [Unknown]
  - Product prescribing error [Unknown]
  - Transaminases increased [Unknown]

NARRATIVE: CASE EVENT DATE: 20200910
